FAERS Safety Report 7326182-X (Version None)
Quarter: 2011Q1

REPORT INFORMATION
  Report Type: 
  Country: None (occurrence: None)
  Receive Date: 20110302
  Receipt Date: 20110301
  Transmission Date: 20110831
  Serious: Yes (Other)
  Sender: FDA-Public Use
  Company Number: HU-ABBOTT-11P-076-0701515-00

PATIENT
  Sex: Female

DRUGS (3)
  1. METHOTREXATE [Suspect]
     Indication: RHEUMATOID ARTHRITIS
     Route: 048
     Dates: start: 20080201, end: 20101201
  2. HYDROXYUREA [Concomitant]
     Indication: WHITE BLOOD CELL COUNT INCREASED
     Route: 048
     Dates: start: 20101201
  3. HUMIRA [Suspect]
     Indication: RHEUMATOID ARTHRITIS
     Route: 058
     Dates: start: 20080605, end: 20101117

REACTIONS (1)
  - WHITE BLOOD CELL COUNT INCREASED [None]
